FAERS Safety Report 11219399 (Version 1)
Quarter: 2015Q2

REPORT INFORMATION
  Report Type: Spontaneous
  Country: US (occurrence: US)
  Receive Date: 20150625
  Receipt Date: 20150625
  Transmission Date: 20150821
  Serious: Yes (Hospitalization, Other)
  Sender: FDA-Public Use
  Company Number: US-BRISTOL-MYERS SQUIBB COMPANY-BMS-2015-040803

PATIENT
  Age: 65 Year
  Sex: Male

DRUGS (3)
  1. NATEGLINIDE. [Suspect]
     Active Substance: NATEGLINIDE
     Indication: DIABETES MELLITUS
     Dosage: 120 MG, BID
     Route: 048
  2. TENOFOVIR [Concomitant]
     Active Substance: TENOFOVIR
     Indication: HEPATITIS B
     Dosage: 300 MG, QD
     Route: 065
  3. GLYBURIDE,METFORMIN HYDROCHLORIDE [Suspect]
     Active Substance: GLYBURIDE\METFORMIN HYDROCHLORIDE
     Indication: DIABETES MELLITUS
     Dosage: 1 DF, QID
     Route: 065

REACTIONS (2)
  - Renal failure [Unknown]
  - Hypoglycaemia [Unknown]
